FAERS Safety Report 9142895 (Version 1)
Quarter: 2013Q1

REPORT INFORMATION
  Report Type: Spontaneous
  Country: US (occurrence: US)
  Receive Date: 20130306
  Receipt Date: 20130306
  Transmission Date: 20140127
  Serious: No
  Sender: FDA-Public Use
  Company Number: US-PFIZER INC-2013075604

PATIENT
  Age: 52 Year
  Sex: Male
  Weight: 136.96 kg

DRUGS (14)
  1. ATORVASTATIN CALCIUM [Suspect]
     Dosage: 40 MG, UNK
  2. IBUPROFEN [Interacting]
     Dosage: 800 MG, 2X/DAY
     Route: 048
  3. CILOSTAZOL [Interacting]
     Dosage: 100 MG, UNK
     Route: 048
  4. METFORMIN HCL [Interacting]
     Dosage: 1000 MG, 2X/DAY
     Route: 048
  5. CARVEDILOL [Interacting]
     Dosage: 25 MG, 2X/DAY
  6. LISINOPRIL [Interacting]
     Dosage: 20 MG, UNK
  7. HYDROCHLOROTHIAZIDE [Interacting]
     Dosage: 25 MG, UNK
     Route: 048
  8. PODOFILOX [Interacting]
     Indication: PRURITUS GENITAL
     Dosage: 0.5 %, 2X/DAY
     Route: 061
     Dates: start: 20121116, end: 20121116
  9. FISH OIL [Interacting]
     Dosage: 1000 MG, 2X/DAY
     Route: 048
  10. ASPIRIN ^BAYER^ [Interacting]
     Dosage: 81 MG, DAILY
  11. RANITIDINE [Interacting]
     Dosage: 150 MG, UNK
     Route: 048
  12. FENOFIBRATE [Interacting]
     Dosage: 160 MG, UNK
  13. LANTUS [Interacting]
     Dosage: 25 IU, 1X/DAY
  14. HUMALOG [Interacting]
     Dosage: 10 MG, 1X/DAY

REACTIONS (4)
  - Application site pain [Not Recovered/Not Resolved]
  - Tremor [Recovering/Resolving]
  - Hypersensitivity [Unknown]
  - Drug interaction [Unknown]
